FAERS Safety Report 8388634-3 (Version None)
Quarter: 2012Q2

REPORT INFORMATION
  Report Type: 
  Country: None (occurrence: None)
  Receive Date: 20120525
  Receipt Date: 20120516
  Transmission Date: 20120825
  Serious: Yes (Hospitalization)
  Sender: FDA-Public Use
  Company Number: JP-MERCK-1101USA01478

PATIENT
  Age: 69 Year
  Sex: Female

DRUGS (12)
  1. ASPIRIN [Concomitant]
     Route: 065
  2. LIPITOR [Concomitant]
     Route: 065
  3. OMEPRAZOLE [Concomitant]
     Route: 065
  4. JANUVIA [Suspect]
     Indication: TYPE 2 DIABETES MELLITUS
     Route: 048
     Dates: start: 20101208, end: 20101224
  5. MECOBALAMIN [Concomitant]
     Route: 065
  6. CORINAEL L [Concomitant]
     Route: 065
  7. GOODMIN [Concomitant]
     Route: 065
  8. TRICHLORMETHIAZIDE [Concomitant]
     Route: 065
  9. LASIX [Concomitant]
     Route: 065
  10. PAMILCON [Concomitant]
     Route: 065
  11. ACETAMINOPHEN [Concomitant]
     Route: 065
  12. METFORMIN HCL [Concomitant]
     Route: 065

REACTIONS (3)
  - DIARRHOEA [None]
  - TUBULOINTERSTITIAL NEPHRITIS [None]
  - RENAL FAILURE ACUTE [None]
